FAERS Safety Report 23267408 (Version 1)
Quarter: 2023Q4

REPORT INFORMATION
  Report Type: Report from Study
  Country: GB (occurrence: GB)
  Receive Date: 20231206
  Receipt Date: 20231206
  Transmission Date: 20240110
  Serious: Yes (Other)
  Sender: FDA-Public Use
  Company Number: GB-NOVPHSZ-PHHY2019GB211955

PATIENT
  Sex: Female

DRUGS (2)
  1. HYRIMOZ [Suspect]
     Active Substance: ADALIMUMAB-ADAZ
     Indication: Crohn^s disease
     Dosage: 40 MG, Q2W
     Route: 058
  2. HYRIMOZ [Suspect]
     Active Substance: ADALIMUMAB-ADAZ
     Dosage: 40 MG, EVERY OTHER WEEK
     Route: 058

REACTIONS (7)
  - Neoplasm malignant [Unknown]
  - Squamous cell carcinoma [Unknown]
  - Skin cancer [Unknown]
  - Polyp [Unknown]
  - Tooth infection [Unknown]
  - Neoplasm [Unknown]
  - Recurrent cancer [Unknown]
